FAERS Safety Report 18154508 (Version 1)
Quarter: 2020Q3

REPORT INFORMATION
  Report Type: Report from Study
  Country: None (occurrence: LB)
  Receive Date: 20200817
  Receipt Date: 20200817
  Transmission Date: 20201103
  Serious: Yes (Hospitalization)
  Sender: FDA-Public Use
  Company Number: LB-ABBVIE-20K-093-3524893-00

PATIENT
  Age: 54 Year
  Sex: Male
  Weight: 72.5 kg

DRUGS (3)
  1. HUMIRA [Suspect]
     Active Substance: ADALIMUMAB
     Route: 058
     Dates: start: 201905, end: 201908
  2. HUMIRA [Suspect]
     Active Substance: ADALIMUMAB
     Indication: CROHN^S DISEASE
     Dosage: 160 MG LOADING DOSE
     Route: 058
     Dates: start: 201904, end: 201904
  3. HUMIRA [Suspect]
     Active Substance: ADALIMUMAB
     Dosage: 80 MG LOADING DOSE
     Route: 058
     Dates: start: 201904, end: 201904

REACTIONS (5)
  - Dysphagia [Recovered/Resolved]
  - Infection [Recovered/Resolved]
  - Musculoskeletal discomfort [Recovered/Resolved]
  - Neck pain [Recovered/Resolved]
  - Benign lymph node neoplasm [Recovered/Resolved]

NARRATIVE: CASE EVENT DATE: 202005
